FAERS Safety Report 20517293 (Version 2)
Quarter: 2022Q4

REPORT INFORMATION
  Report Type: Spontaneous
  Country: US (occurrence: US)
  Receive Date: 20220225
  Receipt Date: 20221018
  Transmission Date: 20230113
  Serious: Yes (Other)
  Sender: FDA-Public Use
  Company Number: US-RECORDATI RARE DISEASE INC.-2021005061

PATIENT
  Age: 63 Year
  Sex: Female

DRUGS (3)
  1. DESOXYN [Suspect]
     Active Substance: METHAMPHETAMINE HYDROCHLORIDE
     Indication: Porphyria
     Dosage: 5MG FOUR PILLS FOUR TIMES A DAY
     Route: 048
     Dates: start: 2011
  2. DESOXYN [Suspect]
     Active Substance: METHAMPHETAMINE HYDROCHLORIDE
     Indication: Attention deficit hyperactivity disorder
     Dosage: 20 MILLIGRAM, Q6H
     Route: 048
     Dates: end: 20221006
  3. METHAMPHETAMINE HYDROCHLORIDE [Concomitant]
     Active Substance: METHAMPHETAMINE HYDROCHLORIDE
     Indication: Product used for unknown indication
     Dosage: UNK UNK, UNK
     Route: 065

REACTIONS (11)
  - Porphyria [Not Recovered/Not Resolved]
  - Nausea [Recovered/Resolved]
  - Abdominal pain [Not Recovered/Not Resolved]
  - Vomiting [Recovered/Resolved]
  - Neuralgia [Recovered/Resolved]
  - Diarrhoea [Not Recovered/Not Resolved]
  - Illness [Not Recovered/Not Resolved]
  - Malaise [Recovered/Resolved]
  - Therapy interrupted [Not Recovered/Not Resolved]
  - Product availability issue [Recovered/Resolved]
  - Off label use [Unknown]

NARRATIVE: CASE EVENT DATE: 20111007
